FAERS Safety Report 9029517 (Version 1)
Quarter: 2013Q1

REPORT INFORMATION
  Report Type: Spontaneous
  Country: US (occurrence: US)
  Receive Date: 20130125
  Receipt Date: 20130125
  Transmission Date: 20140127
  Serious: No
  Sender: FDA-Public Use
  Company Number: US-009507513-1301USA010816

PATIENT
  Sex: Female

DRUGS (4)
  1. SINGULAIR [Suspect]
     Indication: ASTHMA
     Dosage: 10 MG, UNK
     Route: 048
  2. SINGULAIR [Suspect]
     Dosage: 5 MG, UNK
     Route: 048
  3. DULERA [Concomitant]
     Dosage: 200/5 MICROGRAMS
     Route: 055
  4. DULERA [Concomitant]
     Dosage: 100/5 MICROGRAMS
     Route: 055

REACTIONS (2)
  - Dyspnoea [Not Recovered/Not Resolved]
  - Nightmare [Recovering/Resolving]
